FAERS Safety Report 21453941 (Version 1)
Quarter: 2022Q4

REPORT INFORMATION
  Report Type: Spontaneous
  Country: US (occurrence: US)
  Receive Date: 20221013
  Receipt Date: 20221013
  Transmission Date: 20230113
  Serious: No
  Sender: FDA-Public Use
  Company Number: US-SA-SAC20221012000138

PATIENT
  Age: 63 Year
  Sex: Female

DRUGS (7)
  1. AUBAGIO [Suspect]
     Active Substance: TERIFLUNOMIDE
     Indication: Multiple sclerosis
     Dosage: 1 DF, QD
     Route: 048
     Dates: start: 201512
  2. CHONDROITIN SULFATE (CHICKEN) [Concomitant]
     Active Substance: CHONDROITIN SULFATE (CHICKEN)
  3. IRON [IRON DEXTRAN] [Concomitant]
  4. CALCIUM [Concomitant]
     Active Substance: CALCIUM
  5. CYANOCOBALAMIN [Concomitant]
     Active Substance: CYANOCOBALAMIN
  6. VITAMIN D3 [Concomitant]
     Active Substance: CHOLECALCIFEROL
  7. OYSTER SHELL [Concomitant]
     Active Substance: OSTREA EDULIS SHELL

REACTIONS (1)
  - Trichorrhexis [Recovered/Resolved]
